FAERS Safety Report 13551305 (Version 2)
Quarter: 2017Q2

REPORT INFORMATION
  Report Type: Spontaneous
  Country: US (occurrence: US)
  Receive Date: 20170516
  Receipt Date: 20170605
  Transmission Date: 20170830
  Serious: Yes (Hospitalization)
  Sender: FDA-Public Use
  Company Number: US-BIOMARINAP-US-2017-113968

PATIENT
  Sex: Female
  Weight: 64.47 kg

DRUGS (3)
  1. PHENYLADE [Concomitant]
     Indication: PHENYLKETONURIA
     Dosage: UNK UNK, QD
     Route: 048
     Dates: start: 2015
  2. CALCIUM [Concomitant]
     Active Substance: CALCIUM
     Indication: PRODUCT USED FOR UNKNOWN INDICATION
     Route: 048
  3. KUVAN [Suspect]
     Active Substance: SAPROPTERIN DIHYDROCHLORIDE
     Indication: PHENYLKETONURIA
     Dosage: 1200 MG, QD
     Route: 048
     Dates: start: 20110217

REACTIONS (3)
  - Pre-eclampsia [Unknown]
  - Colitis [Unknown]
  - Maternal exposure during pregnancy [Recovered/Resolved]
